FAERS Safety Report 17978497 (Version 3)
Quarter: 2021Q2

REPORT INFORMATION
  Report Type: Spontaneous
  Country: US (occurrence: US)
  Receive Date: 20200703
  Receipt Date: 20210624
  Transmission Date: 20210717
  Serious: Yes (Hospitalization, Other)
  Sender: FDA-Public Use
  Company Number: US-GILEAD-2020-0478071

PATIENT
  Age: 59 Year
  Sex: Male
  Weight: 76.64 kg

DRUGS (33)
  1. TRUVADA [Suspect]
     Active Substance: EMTRICITABINE\TENOFOVIR DISOPROXIL FUMARATE
     Indication: HIV INFECTION
     Dosage: UNK
     Route: 048
     Dates: start: 20100430, end: 201404
  2. STRIBILD [Suspect]
     Active Substance: COBICISTAT\ELVITEGRAVIR\EMTRICITABINE\TENOFOVIR DISOPROXIL FUMARATE
     Indication: HIV INFECTION
     Dosage: UNK
     Route: 048
     Dates: start: 201405, end: 2018
  3. ODEFSEY [Concomitant]
     Active Substance: EMTRICITABINE\RILPIVIRINE HYDROCHLORIDE\TENOFOVIR ALAFENAMIDE FUMARATE
     Indication: HIV INFECTION
  4. RENAPLEX [Concomitant]
  5. ESOMEPRAZOLE. [Concomitant]
     Active Substance: ESOMEPRAZOLE MAGNESIUM
  6. ZANTAC [Concomitant]
     Active Substance: RANITIDINE HYDROCHLORIDE
  7. COMPLERA [Suspect]
     Active Substance: EMTRICITABINE\RILPIVIRINE HYDROCHLORIDE\TENOFOVIR DISOPROXIL FUMARATE
     Dosage: UNK
     Route: 065
     Dates: start: 20111031, end: 20120329
  8. ACETAMINOPHEN. [Concomitant]
     Active Substance: ACETAMINOPHEN
  9. AMOXICILLIN. [Concomitant]
     Active Substance: AMOXICILLIN
  10. ISENTRESS [Concomitant]
     Active Substance: RALTEGRAVIR POTASSIUM
  11. STRIBILD [Suspect]
     Active Substance: COBICISTAT\ELVITEGRAVIR\EMTRICITABINE\TENOFOVIR DISOPROXIL FUMARATE
     Dosage: UNK
     Route: 048
     Dates: start: 20140530, end: 20150420
  12. VELPHORO [Concomitant]
     Active Substance: SUCROFERRIC OXYHYDROXIDE
  13. AMITRIPTYLINE [Concomitant]
     Active Substance: AMITRIPTYLINE
  14. LANTUS [Concomitant]
     Active Substance: INSULIN GLARGINE
  15. SYMTUZA [Concomitant]
     Active Substance: COBICISTAT\DARUNAVIR\EMTRICITABINE\TENOFOVIR ALAFENAMIDE
  16. FAMOTIDINE. [Concomitant]
     Active Substance: FAMOTIDINE
  17. HEPARIN [Concomitant]
     Active Substance: HEPARIN SODIUM
  18. TYLENOL [Concomitant]
     Active Substance: ACETAMINOPHEN
  19. BASAGLAR [Concomitant]
     Active Substance: INSULIN GLARGINE
  20. DESCOVY [Concomitant]
     Active Substance: EMTRICITABINE\TENOFOVIR ALAFENAMIDE FUMARATE
  21. ASPIRINE [Concomitant]
     Active Substance: ASPIRIN
  22. PANTOPRAZOLE [Concomitant]
     Active Substance: PANTOPRAZOLE
  23. PENICILLIN [PENICILLIN NOS] [Concomitant]
     Active Substance: PENICILLIN
  24. PREZCOBIX [Concomitant]
     Active Substance: COBICISTAT\DARUNAVIR ETHANOLATE
  25. TIVICAY [Concomitant]
     Active Substance: DOLUTEGRAVIR SODIUM
  26. ATORVASTATIN [Concomitant]
     Active Substance: ATORVASTATIN
  27. HUMALOG [Concomitant]
     Active Substance: INSULIN LISPRO
  28. COMPLERA [Suspect]
     Active Substance: EMTRICITABINE\RILPIVIRINE HYDROCHLORIDE\TENOFOVIR DISOPROXIL FUMARATE
     Indication: HIV INFECTION
     Dosage: UNK
     Route: 065
     Dates: start: 20111003, end: 20111212
  29. BIKTARVY [Concomitant]
     Active Substance: BICTEGRAVIR SODIUM\EMTRICITABINE\TENOFOVIR ALAFENAMIDE FUMARATE
  30. JULUCA [Concomitant]
     Active Substance: DOLUTEGRAVIR SODIUM\RILPIVIRINE HYDROCHLORIDE
  31. OMEPRAZOLE. [Concomitant]
     Active Substance: OMEPRAZOLE
  32. RANITIDINE. [Concomitant]
     Active Substance: RANITIDINE
  33. PIFELTRO [Concomitant]
     Active Substance: DORAVIRINE
     Indication: HIV INFECTION

REACTIONS (15)
  - Seizure [Unknown]
  - Pain [Unknown]
  - Multiple fractures [Unknown]
  - Erectile dysfunction [Unknown]
  - Renal failure [Unknown]
  - Hypertension [Not Recovered/Not Resolved]
  - Nausea [Unknown]
  - Proteinuria [Not Recovered/Not Resolved]
  - Bacterial infection [Unknown]
  - End stage renal disease [Not Recovered/Not Resolved]
  - Cerebrovascular accident [Unknown]
  - Acute kidney injury [Unknown]
  - Vitamin D deficiency [Unknown]
  - Emotional distress [Unknown]
  - Chronic kidney disease [Unknown]

NARRATIVE: CASE EVENT DATE: 20181127
